FAERS Safety Report 20636239 (Version 1)
Quarter: 2022Q1

REPORT INFORMATION
  Report Type: Spontaneous
  Country: US (occurrence: US)
  Receive Date: 20220325
  Receipt Date: 20220325
  Transmission Date: 20220424
  Serious: Yes (Other)
  Sender: FDA-Public Use
  Company Number: US-GLAXOSMITHKLINE-US2022GSK053626

PATIENT
  Sex: Female

DRUGS (12)
  1. RANITIDINE [Suspect]
     Active Substance: RANITIDINE
     Indication: Dyspepsia
     Dosage: UNK, QD
     Route: 065
     Dates: start: 201606, end: 201612
  2. RANITIDINE [Suspect]
     Active Substance: RANITIDINE
     Indication: Abdominal distension
  3. RANITIDINE [Suspect]
     Active Substance: RANITIDINE
     Indication: Gastric disorder
  4. RANITIDINE [Suspect]
     Active Substance: RANITIDINE
     Indication: Dyspepsia
     Dosage: UNK, QD
     Route: 065
     Dates: start: 201606, end: 201612
  5. RANITIDINE [Suspect]
     Active Substance: RANITIDINE
     Indication: Abdominal distension
  6. RANITIDINE [Suspect]
     Active Substance: RANITIDINE
     Indication: Gastric disorder
  7. ZANTAC [Suspect]
     Active Substance: RANITIDINE HYDROCHLORIDE
     Indication: Dyspepsia
     Dosage: 75 MG, QD
     Route: 065
     Dates: start: 201412, end: 201512
  8. ZANTAC [Suspect]
     Active Substance: RANITIDINE HYDROCHLORIDE
     Indication: Abdominal distension
  9. ZANTAC [Suspect]
     Active Substance: RANITIDINE HYDROCHLORIDE
     Indication: Gastric disorder
  10. RANITIDINE [Suspect]
     Active Substance: RANITIDINE
     Indication: Dyspepsia
     Dosage: 75 MG, QD
     Route: 065
     Dates: start: 201412, end: 201512
  11. RANITIDINE [Suspect]
     Active Substance: RANITIDINE
     Indication: Abdominal distension
  12. RANITIDINE [Suspect]
     Active Substance: RANITIDINE
     Indication: Gastric disorder

REACTIONS (1)
  - Renal cancer [Unknown]
